FAERS Safety Report 7067605-3 (Version None)
Quarter: 2010Q4

REPORT INFORMATION
  Report Type: 
  Country: None (occurrence: None)
  Receive Date: 20101028
  Receipt Date: 20101022
  Transmission Date: 20110411
  Serious: Yes (Hospitalization)
  Sender: FDA-Public Use
  Company Number: JP-BRISTOL-MYERS SQUIBB COMPANY-15245962

PATIENT
  Age: 41 Year
  Sex: Male
  Weight: 92 kg

DRUGS (1)
  1. BARACLUDE [Suspect]
     Indication: HEPATITIS B
     Route: 048
     Dates: start: 20091207

REACTIONS (2)
  - HAEMATEMESIS [None]
  - PULMONARY ALVEOLAR HAEMORRHAGE [None]
